FAERS Safety Report 5265581-7 (Version None)
Quarter: 2007Q1

REPORT INFORMATION
  Report Type: 
  Country: None (occurrence: None)
  Receive Date: 20061213
  Receipt Date: 20040419
  Transmission Date: 20070707
  Serious: Yes (Other)
  Sender: FDA-Public Use
  Company Number: 2004UW07836

PATIENT
  Age: 70 Year
  Sex: Female
  Weight: 59.8748 kg

DRUGS (4)
  1. IRESSA [Suspect]
     Indication: NON-SMALL CELL LUNG CANCER
  2. COUMADIN [Concomitant]
  3. CALCIUM [Concomitant]
  4. VITAMIN B COMPLEX CAP [Concomitant]

REACTIONS (2)
  - HAIR DISORDER [None]
  - HAIR GROWTH ABNORMAL [None]
